FAERS Safety Report 4512465-5 (Version None)
Quarter: 2004Q4

REPORT INFORMATION
  Report Type: 
  Country: None (occurrence: None)
  Receive Date: 20041008
  Receipt Date: 20040814
  Transmission Date: 20050328
  Serious: Yes (Hospitalization)
  Sender: FDA-Public Use
  Company Number: 377886

PATIENT
  Age: 41 Year
  Sex: Female
  Weight: 150 kg

DRUGS (2)
  1. FUZEON [Suspect]
     Indication: HIV INFECTION
     Dosage: 90 MG/ML    2 PER DAY   SUBCUTANEOUS
     Route: 058
     Dates: start: 20030617
  2. ANTIRETROVIRALS (ANTIRETROVIRALS) [Concomitant]

REACTIONS (5)
  - DYSPNOEA [None]
  - JAUNDICE [None]
  - PNEUMONIA BACTERIAL [None]
  - VIRAL LOAD INCREASED [None]
  - WEIGHT DECREASED [None]
